FAERS Safety Report 5011390-3 (Version None)
Quarter: 2006Q2

REPORT INFORMATION
  Report Type: 
  Country: None (occurrence: None)
  Receive Date: 20060404
  Receipt Date: 20051107
  Transmission Date: 20061013
  Serious: No
  Sender: FDA-Public Use
  Company Number: US_0511123794

PATIENT
  Sex: Male

DRUGS (5)
  1. CYMBALTA [Suspect]
     Indication: SHOULDER PAIN
     Dosage: 30 MG, DAILY (1/D), ORAL
     Route: 048
     Dates: start: 20051103
  2. SUGAR PILL [Concomitant]
  3. CHOLESTEROL PILL [Concomitant]
  4. HIGH BLOOD PRESSURE PILL [Concomitant]
  5. HYDROCODONE [Concomitant]

REACTIONS (2)
  - NAUSEA [None]
  - VOMITING [None]
